FAERS Safety Report 5130436-5 (Version None)
Quarter: 2006Q4

REPORT INFORMATION
  Report Type: 
  Country: None (occurrence: None)
  Receive Date: 20061019
  Receipt Date: 20061004
  Transmission Date: 20070319
  Serious: Yes (Hospitalization, Other)
  Sender: FDA-Public Use
  Company Number: PHBS2006ZA15541

PATIENT
  Sex: Male

DRUGS (14)
  1. SANDIMMUNE [Suspect]
     Indication: GRAFT VERSUS HOST DISEASE
     Dates: start: 20040401, end: 20040501
  2. SANDIMMUNE [Suspect]
     Dates: start: 20050501
  3. SANDIMMUNE [Suspect]
     Dosage: UNK, UNK
     Route: 065
     Dates: start: 20030601, end: 20040101
  4. CELLCEPT [Concomitant]
     Dates: start: 20050713
  5. CORTISONE ACETATE [Suspect]
     Indication: GRAFT VERSUS HOST DISEASE
     Dates: start: 20030601
  6. LOSEC [Concomitant]
     Dates: start: 20050806
  7. PROZAC [Concomitant]
     Dates: start: 20050817
  8. ZOPIMED [Concomitant]
     Dates: start: 20050630
  9. WARFARIN SODIUM [Concomitant]
  10. PROBIOTICA [Concomitant]
  11. XANOR [Concomitant]
  12. SLOW-MAG [Concomitant]
  13. BEROCCA [Concomitant]
  14. GASTROLYTE [Concomitant]

REACTIONS (22)
  - ARTHRALGIA [None]
  - ASPERGILLOSIS [None]
  - DISCOMFORT [None]
  - DYSGRAPHIA [None]
  - DYSPEPSIA [None]
  - HIP ARTHROPLASTY [None]
  - HIP SURGERY [None]
  - LIVER FUNCTION TEST ABNORMAL [None]
  - LUNG ABSCESS [None]
  - MOVEMENT DISORDER [None]
  - MUSCLE SPASMS [None]
  - MUSCULAR WEAKNESS [None]
  - OESOPHAGEAL SPASM [None]
  - OSTEONECROSIS [None]
  - PAIN [None]
  - SPEECH DISORDER [None]
  - STAPHYLOCOCCAL ABSCESS [None]
  - STREPTOCOCCAL ABSCESS [None]
  - SURGERY [None]
  - TRISMUS [None]
  - TUBERCULOSIS [None]
  - WEIGHT DECREASED [None]
